FAERS Safety Report 12416565 (Version 1)
Quarter: 2016Q2

REPORT INFORMATION
  Report Type: Spontaneous
  Country: CN (occurrence: CN)
  Receive Date: 20160530
  Receipt Date: 20160530
  Transmission Date: 20160815
  Serious: Yes (Other)
  Sender: FDA-Public Use
  Company Number: CN-JNJFOC-20130701390

PATIENT
  Age: 8 Year
  Sex: Male
  Weight: 40 kg

DRUGS (1)
  1. TOPAMAX [Suspect]
     Active Substance: TOPIRAMATE
     Indication: EPILEPSY
     Dosage: 25 MG IN THE MORNING AND 37.5MG IN THE EVENING
     Route: 048
     Dates: start: 201211

REACTIONS (6)
  - Growth retardation [Not Recovered/Not Resolved]
  - Decreased appetite [Not Recovered/Not Resolved]
  - Anger [Not Recovered/Not Resolved]
  - Weight gain poor [Not Recovered/Not Resolved]
  - Expired product administered [Unknown]
  - Liver function test abnormal [Recovering/Resolving]
